FAERS Safety Report 8385340 (Version 2)
Quarter: 2015Q1

REPORT INFORMATION
  Report Type: Report from Study
  Country: US (occurrence: US)
  Receive Date: 20120202
  Receipt Date: 20150312
  Transmission Date: 20150721
  Serious: Yes (Death)
  Sender: FDA-Public Use
  Company Number: US-ROCHE-1035769

PATIENT
  Age: 63 Year
  Sex: Male
  Weight: 83.54 kg

DRUGS (19)
  1. TINCTURE OF OPIUM [Concomitant]
     Active Substance: OPIUM
  2. FENTANYL. [Concomitant]
     Active Substance: FENTANYL
     Route: 065
  3. DECADRON [Concomitant]
     Active Substance: DEXAMETHASONE
     Route: 042
  4. VIOKASE [Concomitant]
     Active Substance: PANCRELIPASE
  5. DURAGESIC [Concomitant]
     Active Substance: FENTANYL
     Route: 065
  6. GEMZAR [Concomitant]
     Active Substance: GEMCITABINE HYDROCHLORIDE
     Route: 042
  7. DILAUDID [Concomitant]
     Active Substance: HYDROMORPHONE HYDROCHLORIDE
  8. TARCEVA [Suspect]
     Active Substance: ERLOTINIB HYDROCHLORIDE
     Indication: PANCREATIC CARCINOMA
     Route: 065
  9. COUMADIN [Suspect]
     Active Substance: WARFARIN SODIUM
     Indication: PRODUCT USED FOR UNKNOWN INDICATION
     Route: 065
  10. MINOCYCLINE [Concomitant]
     Active Substance: MINOCYCLINE\MINOCYCLINE HYDROCHLORIDE
  11. ANZEMET [Concomitant]
     Active Substance: DOLASETRON MESYLATE
     Route: 042
  12. DURAGESIC [Concomitant]
     Active Substance: FENTANYL
     Route: 065
  13. LANTUS [Concomitant]
     Active Substance: INSULIN GLARGINE
  14. GRANISETRON [Concomitant]
     Active Substance: GRANISETRON
  15. PRILOSEC [Concomitant]
     Active Substance: OMEPRAZOLE MAGNESIUM
  16. MEGACE [Concomitant]
     Active Substance: MEGESTROL ACETATE
  17. AVASTIN [Suspect]
     Active Substance: BEVACIZUMAB
     Indication: PANCREATIC CARCINOMA
     Route: 042
     Dates: start: 20071031
  18. IMODIUM [Concomitant]
     Active Substance: LOPERAMIDE HYDROCHLORIDE
  19. KETOPROFEN. [Concomitant]
     Active Substance: KETOPROFEN
     Route: 061

REACTIONS (31)
  - Death [Fatal]
  - Decreased appetite [Unknown]
  - Hyperventilation [Unknown]
  - Dyspepsia [Unknown]
  - Diarrhoea [Unknown]
  - Night sweats [Unknown]
  - Dizziness [Unknown]
  - Dry mouth [Unknown]
  - Nausea [Unknown]
  - Off label use [Unknown]
  - Dyspnoea [Unknown]
  - Anxiety [Unknown]
  - Sputum discoloured [Unknown]
  - Dysgeusia [Unknown]
  - Oedema peripheral [Recovering/Resolving]
  - Abdominal pain upper [Unknown]
  - Metastases to liver [Unknown]
  - Musculoskeletal chest pain [Unknown]
  - Upper extremity mass [Unknown]
  - Abdominal distension [Unknown]
  - Nocturia [Unknown]
  - Chills [Unknown]
  - Weight decreased [Unknown]
  - Contusion [Unknown]
  - Hyperproteinaemia [Unknown]
  - Muscular weakness [Unknown]
  - Vomiting [Unknown]
  - Limb discomfort [Unknown]
  - Abdominal pain [Unknown]
  - Flatulence [Unknown]
  - Pyrexia [Unknown]

NARRATIVE: CASE EVENT DATE: 20071129
